FAERS Safety Report 7124623-4 (Version None)
Quarter: 2010Q4

REPORT INFORMATION
  Report Type: 
  Country: None (occurrence: None)
  Receive Date: 20101122
  Receipt Date: 20101122
  Transmission Date: 20110411
  Serious: Yes (Life-Threatening, Hospitalization, Other)
  Sender: FDA-Public Use
  Company Number: None

PATIENT
  Age: 14 Year
  Sex: Male
  Weight: 39.9165 kg

DRUGS (2)
  1. ZYPREXA [Suspect]
     Indication: SCHIZOPHRENIFORM DISORDER
     Dosage: 25MG 10MG AM, 15MG PM BUCCAL
     Route: 002
     Dates: start: 20090901, end: 20101120
  2. DIPHENHYDRAMINE HCL [Suspect]
     Indication: MENTAL RETARDATION
     Dosage: 25 MG 2 TIMES DAILY BUCCAL
     Route: 002
     Dates: start: 20090901, end: 20101120

REACTIONS (7)
  - AGGRESSION [None]
  - ANAL FISSURE [None]
  - ANAL HAEMORRHAGE [None]
  - CONSTIPATION [None]
  - MEDICATION ERROR [None]
  - RECTAL PROLAPSE [None]
  - URINARY HESITATION [None]
